FAERS Safety Report 14861568 (Version 1)
Quarter: 2018Q2

REPORT INFORMATION
  Report Type: Spontaneous
  Country: US (occurrence: US)
  Receive Date: 20180508
  Receipt Date: 20180508
  Transmission Date: 20180711
  Serious: No
  Sender: FDA-Public Use
  Company Number: US-PERRIGO-17US023624

PATIENT
  Age: 61 Year
  Sex: Female
  Weight: 57.6 kg

DRUGS (11)
  1. VITAMIN D                          /00107901/ [Concomitant]
     Active Substance: ERGOCALCIFEROL
     Indication: SUPPLEMENTATION THERAPY
     Dosage: UNK, QOD
     Route: 065
  2. ALLEGRA [Concomitant]
     Active Substance: FEXOFENADINE HYDROCHLORIDE
     Indication: PRURITUS
     Dosage: UNK, AS NEEDED
     Route: 065
     Dates: start: 201704
  3. CALCIUM [Concomitant]
     Active Substance: CALCIUM
     Indication: SUPPLEMENTATION THERAPY
     Dosage: UNK, QOD
     Route: 065
  4. VITAMIN A                          /00056001/ [Concomitant]
     Active Substance: RETINOL
     Indication: SUPPLEMENTATION THERAPY
     Dosage: UNK, QOD
     Route: 065
  5. PERMETHRIN. [Suspect]
     Active Substance: PERMETHRIN
     Dosage: 40 G, SINGLE
     Route: 061
     Dates: start: 20170421, end: 20170421
  6. ASPIRIN                            /00002701/ [Concomitant]
     Active Substance: ASPIRIN
     Indication: CARDIOVASCULAR EVENT PROPHYLAXIS
     Dosage: 81 MG, QOD
     Route: 048
  7. XANAX [Concomitant]
     Active Substance: ALPRAZOLAM
     Indication: ANXIETY
     Dosage: UNK, PRN
     Route: 065
     Dates: start: 2007
  8. ATENOLOL. [Concomitant]
     Active Substance: ATENOLOL
     Indication: HYPERTENSION
     Dosage: UNK
     Route: 065
     Dates: start: 2002
  9. ZYRTEC [Concomitant]
     Active Substance: CETIRIZINE HYDROCHLORIDE
     Indication: PRURITUS
     Dosage: UNK, AS NEEDED
     Route: 065
     Dates: start: 201704
  10. FISH OIL [Concomitant]
     Active Substance: FISH OIL
     Indication: SUPPLEMENTATION THERAPY
     Dosage: UNK, QOD
     Route: 065
  11. PERMETHRIN. [Suspect]
     Active Substance: PERMETHRIN
     Indication: ARTHROPOD BITE
     Dosage: 40 G, SINGLE
     Route: 061
     Dates: start: 20170417, end: 20170417

REACTIONS (3)
  - Skin burning sensation [Recovering/Resolving]
  - Erythema [Recovering/Resolving]
  - Off label use [Recovered/Resolved]

NARRATIVE: CASE EVENT DATE: 20170414
